FAERS Safety Report 12988224 (Version 1)
Quarter: 2016Q4

REPORT INFORMATION
  Report Type: Spontaneous
  Country: PT (occurrence: PT)
  Receive Date: 20161130
  Receipt Date: 20161130
  Transmission Date: 20170207
  Serious: Yes (Death)
  Sender: FDA-Public Use
  Company Number: PT-CELGENEUS-PRT-2016115608

PATIENT

DRUGS (1)
  1. REVLIMID [Suspect]
     Active Substance: LENALIDOMIDE
     Indication: PRIMARY MYELOFIBROSIS
     Route: 048

REACTIONS (6)
  - Haemorrhage [Fatal]
  - Infection [Fatal]
  - Transplantation complication [Fatal]
  - Death [Fatal]
  - Second primary malignancy [Fatal]
  - Primary myelofibrosis [Fatal]
